FAERS Safety Report 4864944-9 (Version None)
Quarter: 2005Q4

REPORT INFORMATION
  Report Type: 
  Country: None (occurrence: None)
  Receive Date: 20051201
  Receipt Date: 20050716
  Transmission Date: 20060501
  Serious: No
  Sender: FDA-Public Use
  Company Number: 2005PV000444

PATIENT
  Age: 63 Year
  Sex: Female
  Weight: 76.2043 kg

DRUGS (22)
  1. BYETTA [Suspect]
     Indication: DIABETES MELLITUS NON-INSULIN-DEPENDENT
     Dosage: 5 MCG;BID;SC
     Route: 058
     Dates: start: 20050627, end: 20050717
  2. AVANDIA [Concomitant]
  3. GLUCOPHAGE [Concomitant]
  4. ISORORBIDE MONONITRATE [Concomitant]
  5. EFFEXOR XR [Concomitant]
  6. METOPROLOL [Concomitant]
  7. ALTACE [Concomitant]
  8. NIASPAN [Concomitant]
  9. PLAVIX [Concomitant]
  10. ASPIRIN [Concomitant]
  11. SYNTHROID [Concomitant]
  12. TOPAMAX [Concomitant]
  13. ACIPHEX [Concomitant]
  14. ALLEGRA [Concomitant]
  15. ZINC SULFATE [Concomitant]
  16. MOBIC [Concomitant]
  17. TIZANIDINE HCL [Concomitant]
  18. SONATA [Concomitant]
  19. CLONAZEPAM [Concomitant]
  20. VYTORIN [Concomitant]
  21. XANAX [Concomitant]
  22. PROTONIX [Concomitant]

REACTIONS (5)
  - DEPRESSED LEVEL OF CONSCIOUSNESS [None]
  - EAR DISCOMFORT [None]
  - HEADACHE [None]
  - PHARYNGOLARYNGEAL PAIN [None]
  - RHINORRHOEA [None]
